FAERS Safety Report 8186689 (Version 2)
Quarter: 2017Q3

REPORT INFORMATION
  Report Type: Spontaneous
  Country: US (occurrence: US)
  Receive Date: 20111018
  Receipt Date: 20170816
  Transmission Date: 20171128
  Serious: Yes (Other)
  Sender: FDA-Public Use
  Company Number: US-ASTRAZENECA-2011SE48597

PATIENT
  Age: 49 Year
  Sex: Male

DRUGS (4)
  1. LOW DOSE BABY ASPIRIN [Concomitant]
     Indication: MYOCARDIAL INFARCTION
     Dosage: DAILY
     Route: 048
     Dates: start: 2014
  2. BRILINTA [Concomitant]
     Active Substance: TICAGRELOR
     Indication: MYOCARDIAL INFARCTION
     Route: 048
     Dates: start: 2014
  3. BRILINTA [Concomitant]
     Active Substance: TICAGRELOR
     Indication: STENT PLACEMENT
     Route: 048
     Dates: start: 2014
  4. SYMBICORT [Suspect]
     Active Substance: BUDESONIDE\FORMOTEROL FUMARATE DIHYDRATE
     Indication: CHRONIC OBSTRUCTIVE PULMONARY DISEASE
     Dosage: 160/4.5 MICROGRAMMS DAILY
     Route: 055

REACTIONS (4)
  - Hypertension [Unknown]
  - Malaise [Unknown]
  - Myocardial infarction [Unknown]
  - Drug dose omission [Unknown]

NARRATIVE: CASE EVENT DATE: 2014
